FAERS Safety Report 4662601-5 (Version None)
Quarter: 2005Q2

REPORT INFORMATION
  Report Type: 
  Country: None (occurrence: None)
  Receive Date: 20050513
  Receipt Date: 20050513
  Transmission Date: 20051028
  Serious: Yes (Hospitalization)
  Sender: FDA-Public Use
  Company Number: None

PATIENT
  Age: 56 Year
  Weight: 79.3795 kg

DRUGS (4)
  1. CIPROFLOXACIN [Suspect]
     Indication: PNEUMONIA ASPIRATION
     Dosage: 400MG  BID INTRAVENOUS
     Route: 042
     Dates: start: 20050225, end: 20050226
  2. PIPERACILLIN/TAZOBACTAM [Suspect]
     Indication: PNEUMONIA ASPIRATION
     Dosage: 3.375MG Q6H INTRAVENOUS
     Route: 042
     Dates: start: 20050227, end: 20050228
  3. ASPIRIN [Concomitant]
  4. ZANTAC [Concomitant]

REACTIONS (1)
  - PLATELET COUNT DECREASED [None]
